FAERS Safety Report 9996059 (Version 2)
Quarter: 2014Q2

REPORT INFORMATION
  Report Type: Spontaneous
  Country: US (occurrence: US)
  Receive Date: 20140311
  Receipt Date: 20140502
  Transmission Date: 20141212
  Serious: Yes (Other)
  Sender: FDA-Public Use
  Company Number: US-B.I. PHARMACEUTICALS,INC./RIDGEFIELD-2014-BI-09874BP

PATIENT
  Age: 70 Year
  Sex: Female

DRUGS (8)
  1. SPIRIVA [Suspect]
     Indication: EMPHYSEMA
     Dosage: 18 MCG
     Route: 055
     Dates: start: 20140226
  2. COMBIVENT [Suspect]
     Indication: EMPHYSEMA
     Dosage: DOSE PER APPLICATION: 18 MCG / 103 MCG; DAILY DOSE: 144 MCG / 824 MCG
     Route: 055
     Dates: start: 1999, end: 201306
  3. COMBIVENT [Suspect]
     Indication: EMPHYSEMA
     Dosage: DOSE PER APPLICATION: 20 MCG / 100 MCG; DAILY DOSE: 80 MCG / 400 MCG
     Route: 055
     Dates: start: 201306
  4. ATROVENT INHALATION SOLUTION [Suspect]
     Indication: EMPHYSEMA
     Dosage: 136 MCG
     Route: 055
     Dates: start: 2000, end: 201306
  5. DUO NEBULIZER TREATMENT [Concomitant]
     Indication: EMPHYSEMA
     Route: 055
     Dates: end: 2000
  6. ADVAIR [Concomitant]
     Indication: EMPHYSEMA
     Route: 055
     Dates: start: 2000
  7. MUCINEX [Concomitant]
     Indication: COUGH
     Route: 065
     Dates: start: 201306
  8. XOPENEX [Concomitant]
     Indication: EMPHYSEMA
     Route: 055

REACTIONS (6)
  - Cataract [Recovered/Resolved]
  - Eye irritation [Not Recovered/Not Resolved]
  - Dyspnoea [Not Recovered/Not Resolved]
  - Drug hypersensitivity [Not Recovered/Not Resolved]
  - Lacrimation increased [Not Recovered/Not Resolved]
  - Cough [Not Recovered/Not Resolved]
